FAERS Safety Report 8590593-5 (Version None)
Quarter: 2012Q3

REPORT INFORMATION
  Report Type: 
  Country: None (occurrence: None)
  Receive Date: 20120813
  Receipt Date: 20120809
  Transmission Date: 20120928
  Serious: Yes (Other)
  Sender: FDA-Public Use
  Company Number: CN-PFIZER INC-2012193804

PATIENT

DRUGS (1)
  1. CARDURA [Suspect]
     Dosage: UNK
     Route: 048

REACTIONS (1)
  - ORTHOSTATIC HYPOTENSION [None]
